FAERS Safety Report 7912002-9 (Version None)
Quarter: 2011Q4

REPORT INFORMATION
  Report Type: 
  Country: None (occurrence: None)
  Receive Date: 20111114
  Receipt Date: 20111110
  Transmission Date: 20120403
  Serious: Yes (Other)
  Sender: FDA-Public Use
  Company Number: US-TEVA-306442USA

PATIENT
  Sex: Female

DRUGS (2)
  1. ORAL CONTRACEPTIVE NOS [Concomitant]
  2. CLARAVIS [Suspect]
     Dosage: 60 OR 80 MG
     Route: 048
     Dates: start: 20110825, end: 20111021

REACTIONS (1)
  - UNINTENDED PREGNANCY [None]
